FAERS Safety Report 20506384 (Version 3)
Quarter: 2022Q4

REPORT INFORMATION
  Report Type: Spontaneous
  Country: US (occurrence: US)
  Receive Date: 20220223
  Receipt Date: 20221109
  Transmission Date: 20230112
  Serious: Yes (Hospitalization)
  Sender: FDA-Public Use
  Company Number: US-KARYOPHARM-2022KPT000148

PATIENT

DRUGS (17)
  1. XPOVIO [Suspect]
     Active Substance: SELINEXOR
     Indication: Plasma cell myeloma
     Dosage: 80 MG, 2X/WEEK
     Route: 048
     Dates: start: 20220201, end: 202202
  2. XPOVIO [Suspect]
     Active Substance: SELINEXOR
     Dosage: 40 MG, WEEKLY, DAYS 1, 8, AND 15 OF A 28 DAY CYCLE
     Route: 048
     Dates: start: 2022, end: 202207
  3. XPOVIO [Suspect]
     Active Substance: SELINEXOR
     Dosage: 40 MG, WEEKLY, DAYS 1, 8, AND 15 OF A 28 DAY CYCLE
     Route: 048
     Dates: start: 2022
  4. ELIQUIS [Concomitant]
     Active Substance: APIXABAN
     Dosage: 5 MG
  5. DEXAMETHASONE [Concomitant]
     Active Substance: DEXAMETHASONE
     Dosage: 20 MG
  6. LISINOPRIL [Concomitant]
     Active Substance: LISINOPRIL
     Dosage: 10 MG
  7. POTASSIUM CHLORIDE [Concomitant]
     Active Substance: POTASSIUM CHLORIDE
     Dosage: 10 MEQ
  8. ZOMETA [Concomitant]
     Active Substance: ZOLEDRONIC ACID
     Dosage: 4 MG/100 ML, EVERY 3 MONTHS
     Route: 042
  9. ZOFRAN [Concomitant]
     Active Substance: ONDANSETRON HYDROCHLORIDE
     Dosage: 4 MG
  10. LOMOTIL [Concomitant]
     Active Substance: ATROPINE SULFATE\DIPHENOXYLATE HYDROCHLORIDE
     Dosage: UNK, PRN
  11. LIDOCAINE\PRILOCAINE [Concomitant]
     Active Substance: LIDOCAINE\PRILOCAINE
  12. ACYCLOVIR [Concomitant]
     Active Substance: ACYCLOVIR
  13. ALOXI [Concomitant]
     Active Substance: PALONOSETRON HYDROCHLORIDE
  14. EMEND [Concomitant]
     Active Substance: APREPITANT
  15. KYPROLIS [Concomitant]
     Active Substance: CARFILZOMIB
  16. MIDODRINE [Concomitant]
     Active Substance: MIDODRINE
  17. CEFUROXIME AXETIL [Concomitant]
     Active Substance: CEFUROXIME AXETIL

REACTIONS (5)
  - Pulmonary embolism [Unknown]
  - Hypotension [Recovering/Resolving]
  - COVID-19 [Unknown]
  - Nausea [Unknown]
  - Abdominal pain [Recovering/Resolving]

NARRATIVE: CASE EVENT DATE: 20220201
